FAERS Safety Report 20134368 (Version 1)
Quarter: 2021Q4

REPORT INFORMATION
  Report Type: Spontaneous
  Country: JP (occurrence: JP)
  Receive Date: 20211201
  Receipt Date: 20211201
  Transmission Date: 20220303
  Serious: Yes (Life-Threatening, Hospitalization)
  Sender: FDA-Public Use
  Company Number: JP-NOVARTISPH-NVSJ2021JP019508

PATIENT
  Sex: Male

DRUGS (3)
  1. METFORMIN HYDROCHLORIDE\VILDAGLIPTIN [Suspect]
     Active Substance: METFORMIN HYDROCHLORIDE\VILDAGLIPTIN
     Indication: Type 2 diabetes mellitus
     Dosage: 2 DF: METFORMIN 500 MG/VILDAGLIPTIN 50 MG AFTER BREAKFAST AND DINNER
     Route: 048
  2. GLIMEPIRIDE [Suspect]
     Active Substance: GLIMEPIRIDE
     Indication: Type 2 diabetes mellitus
     Dosage: 2 MG, BID AFTER BREAKFAST AND DINNER
     Route: 048
  3. PIOGLITAZONE HYDROCHLORIDE [Suspect]
     Active Substance: PIOGLITAZONE HYDROCHLORIDE
     Indication: Type 2 diabetes mellitus
     Dosage: 30 MG, QD AFTER BREAKFAST
     Route: 048

REACTIONS (6)
  - Blood sodium decreased [Unknown]
  - Hypoglycaemic coma [Recovered/Resolved]
  - Hypoglycaemia [Unknown]
  - Altered state of consciousness [Unknown]
  - Malaise [Unknown]
  - Hyperglycaemia [Unknown]
